FAERS Safety Report 16430872 (Version 1)
Quarter: 2019Q2

REPORT INFORMATION
  Report Type: Spontaneous
  Country: DE (occurrence: DE)
  Receive Date: 20190614
  Receipt Date: 20190614
  Transmission Date: 20190711
  Serious: Yes (Life-Threatening, Hospitalization)
  Sender: FDA-Public Use
  Company Number: DE-TEVA-2019-DE-1061477

PATIENT
  Age: 13 Year
  Sex: Female
  Weight: 49 kg

DRUGS (5)
  1. DIAZEPAM. [Suspect]
     Active Substance: DIAZEPAM
     Indication: SUICIDE ATTEMPT
     Dosage: DAILY DOSE: 10 MG MILLGRAM(S) EVERY 5 TOTAL
     Route: 048
     Dates: start: 20190422, end: 20190422
  2. FLUVOXAMINE [Suspect]
     Active Substance: FLUVOXAMINE
     Indication: SUICIDE ATTEMPT
     Dosage: DAILY DOSE: 50 MG MILLGRAM(S) EVERY 74 TOTAL
     Route: 048
     Dates: start: 20190422, end: 20190422
  3. FLUVOXAMIN [Concomitant]
     Active Substance: FLUVOXAMINE MALEATE
     Indication: DEPRESSION
     Dosage: DAILY DOSE: 50 MG MILLGRAM(S) EVERY 2 DAYS
     Route: 048
  4. PARACETAMOL [Suspect]
     Active Substance: ACETAMINOPHEN
     Indication: SUICIDE ATTEMPT
     Dosage: DAILY DOSE: 500 MG MILLGRAM(S) EVERY 15 TOTAL
     Route: 048
     Dates: start: 20190422, end: 20190422
  5. BALDRIAN [Suspect]
     Active Substance: VALERIAN
     Indication: SUICIDE ATTEMPT
     Dosage: DAILY DOSE: 45 MG MILLGRAM(S) EVERY 50 TOTAL
     Route: 048
     Dates: start: 20190422, end: 20190422

REACTIONS (2)
  - Suicide attempt [Not Recovered/Not Resolved]
  - Intentional overdose [Not Recovered/Not Resolved]

NARRATIVE: CASE EVENT DATE: 20190422
